FAERS Safety Report 12764812 (Version 1)
Quarter: 2016Q3

REPORT INFORMATION
  Report Type: Spontaneous
  Country: US (occurrence: US)
  Receive Date: 20160921
  Receipt Date: 20160921
  Transmission Date: 20161109
  Serious: Yes (Hospitalization, Other)
  Sender: FDA-Public Use
  Company Number: US-AUROBINDO PHARMA LTD, UK-AUR-APL-2014-05767

PATIENT
  Age: 75 Year
  Sex: Male

DRUGS (8)
  1. AMITRIPTYLINE [Suspect]
     Active Substance: AMITRIPTYLINE
     Indication: DEMENTIA ALZHEIMER^S TYPE
     Dosage: 20 MG ONCE IN THE MORNING AND 30 MG NIGHTLY AT BEDTIME
     Route: 065
  2. CHLORDIAZEPOXIDE. [Suspect]
     Active Substance: CHLORDIAZEPOXIDE
     Dosage: 25MG EVERY 6 HOURS AS NEEDED AND
     Route: 065
  3. TRAZODONE [Suspect]
     Active Substance: TRAZODONE HYDROCHLORIDE
     Indication: DEMENTIA ALZHEIMER^S TYPE
     Dosage: 100 MG NIGHTLY AT BEDTIME
     Route: 065
  4. TOPIRAMATE. [Suspect]
     Active Substance: TOPIRAMATE
     Dosage: 100 MG, AT BED TIME
     Route: 065
  5. OLANZAPINE 15MG [Suspect]
     Active Substance: OLANZAPINE
     Indication: DEMENTIA ALZHEIMER^S TYPE
     Dosage: 15 MG NIGHTLY AT BEDTIME
     Route: 065
  6. TOPIRAMATE. [Suspect]
     Active Substance: TOPIRAMATE
     Indication: DEMENTIA ALZHEIMER^S TYPE
     Dosage: 100 MG, TWO TIMES A DAY
     Route: 065
  7. SERTRALINE 50MG [Suspect]
     Active Substance: SERTRALINE HYDROCHLORIDE
     Indication: DEMENTIA ALZHEIMER^S TYPE
     Dosage: 50 MG ONCE IN THE MORNING
     Route: 065
  8. CHLORDIAZEPOXIDE. [Suspect]
     Active Substance: CHLORDIAZEPOXIDE
     Indication: DEMENTIA ALZHEIMER^S TYPE
     Dosage: 50 MG ONCE IN THE MORNING AND 75 MG NIGHTLY AT BEDTIME
     Route: 065

REACTIONS (7)
  - Memory impairment [Recovered/Resolved]
  - Agitation [Recovered/Resolved]
  - Aggression [Recovered/Resolved]
  - Impaired quality of life [Recovered/Resolved]
  - Cognitive disorder [Recovered/Resolved]
  - Condition aggravated [Recovered/Resolved]
  - Delusion of replacement [Recovered/Resolved]
